FAERS Safety Report 13158382 (Version 1)
Quarter: 2017Q1

REPORT INFORMATION
  Report Type: Spontaneous
  Country: FR (occurrence: FR)
  Receive Date: 20170127
  Receipt Date: 20170127
  Transmission Date: 20170428
  Serious: Yes (Hospitalization)
  Sender: FDA-Public Use
  Company Number: FR-TEVA-732466ROM

PATIENT
  Age: 47 Year
  Sex: Male

DRUGS (4)
  1. AMOXICILLINE MYLAN [Suspect]
     Active Substance: AMOXICILLIN
     Indication: FACE OEDEMA
  2. KETOPROFENE TEVA LP 100 MG [Suspect]
     Active Substance: KETOPROFEN
     Indication: FACE OEDEMA
  3. KETOPROFENE TEVA LP 100 MG [Suspect]
     Active Substance: KETOPROFEN
     Indication: SALIVARY DUCT STENOSIS
     Route: 048
     Dates: start: 20150306, end: 20150306
  4. AMOXICILLINE MYLAN [Suspect]
     Active Substance: AMOXICILLIN
     Indication: SALIVARY DUCT STENOSIS
     Route: 048
     Dates: start: 20150306, end: 20150306

REACTIONS (7)
  - Loss of consciousness [Recovered/Resolved]
  - Feeling hot [Recovered/Resolved]
  - Urticaria [Recovered/Resolved]
  - Dyspnoea [Recovered/Resolved]
  - Dysphagia [Recovered/Resolved]
  - Dysphonia [Recovered/Resolved]
  - Face oedema [Recovered/Resolved]

NARRATIVE: CASE EVENT DATE: 20150306
